FAERS Safety Report 9888971 (Version 1)
Quarter: 2014Q1

REPORT INFORMATION
  Report Type: Spontaneous
  Country: US (occurrence: None)
  Receive Date: 20140210
  Receipt Date: 20140210
  Transmission Date: 20141002
  Serious: Yes (Hospitalization)
  Sender: FDA-Public Use
  Company Number: None

PATIENT
  Age: 49 Year
  Sex: Male
  Weight: 90.72 kg

DRUGS (2)
  1. ANDROGEL [Suspect]
     Indication: BLOOD TESTOSTERONE DECREASED
     Route: 061
     Dates: start: 20111122, end: 20120930
  2. AXIRON [Suspect]
     Indication: BLOOD TESTOSTERONE DECREASED
     Route: 058
     Dates: start: 20121001, end: 20121130

REACTIONS (2)
  - Pulmonary embolism [None]
  - Thrombosis [None]
